FAERS Safety Report 22080166 (Version 1)
Quarter: 2023Q1

REPORT INFORMATION
  Report Type: Spontaneous
  Country: US (occurrence: None)
  Receive Date: 20230309
  Receipt Date: 20230309
  Transmission Date: 20230418
  Serious: Yes (Other)
  Sender: FDA-Public Use
  Company Number: 2023A051801

PATIENT
  Age: 69 Year
  Sex: Male

DRUGS (44)
  1. NEXIUM [Suspect]
     Active Substance: ESOMEPRAZOLE MAGNESIUM
     Route: 048
  2. LEUCOVORIN CALCIUM [Concomitant]
     Active Substance: LEUCOVORIN CALCIUM
  3. DEXAMETH SOD [Concomitant]
  4. OXALIPLATIN [Concomitant]
     Active Substance: OXALIPLATIN
  5. KYTRIL [Concomitant]
     Active Substance: GRANISETRON HYDROCHLORIDE
  6. FOSAPREPITANT [Concomitant]
     Active Substance: FOSAPREPITANT
  7. PEMBROLIZUMAB [Concomitant]
     Active Substance: PEMBROLIZUMAB
  8. HEPARIN SODIUM [Concomitant]
     Active Substance: HEPARIN SODIUM
  9. PACLITAXEL [Concomitant]
     Active Substance: PACLITAXEL
  10. PEPCID [Concomitant]
     Active Substance: FAMOTIDINE
  11. BENADRYL [Concomitant]
     Active Substance: DIPHENHYDRAMINE HYDROCHLORIDE
  12. ONDANSETRON [Concomitant]
     Active Substance: ONDANSETRON
  13. RAMUCIRUMAB [Concomitant]
     Active Substance: RAMUCIRUMAB
  14. TYLENOL [Concomitant]
     Active Substance: ACETAMINOPHEN
  15. ATORVASTATIN [Concomitant]
     Active Substance: ATORVASTATIN
  16. PANTOPRAZOLE [Concomitant]
     Active Substance: PANTOPRAZOLE
  17. MELATONIN [Concomitant]
     Active Substance: MELATONIN
  18. LACTIC ACID [Concomitant]
     Active Substance: LACTIC ACID
  19. ENOXAPARIN [Concomitant]
     Active Substance: ENOXAPARIN
  20. LEVOTHYROXINE [Concomitant]
     Active Substance: LEVOTHYROXINE
  21. ACETAMINOPHEN [Concomitant]
     Active Substance: ACETAMINOPHEN
  22. HYDROMORPHONE [Concomitant]
     Active Substance: HYDROMORPHONE
  23. PROPOFOL [Concomitant]
     Active Substance: PROPOFOL
  24. KETAMINE [Concomitant]
     Active Substance: KETAMINE
  25. LIDOCAINE [Concomitant]
     Active Substance: LIDOCAINE
  26. MIDAZOLAM [Concomitant]
     Active Substance: MIDAZOLAM
  27. MAGNESIUM SULFATE [Concomitant]
     Active Substance: MAGNESIUM SULFATE
  28. MAGNESIUM [Concomitant]
     Active Substance: MAGNESIUM
  29. PHENYLEPHRINE [Concomitant]
     Active Substance: PHENYLEPHRINE HYDROCHLORIDE
  30. SUCCINYLCHOL [Concomitant]
  31. SUGAMMADEX [Concomitant]
     Active Substance: SUGAMMADEX
  32. VITAMIN C [Concomitant]
     Active Substance: ASCORBIC ACID
  33. CALCIUM GLUCONATE [Concomitant]
     Active Substance: CALCIUM GLUCONATE
  34. POTASSIUM ACETATE [Concomitant]
     Active Substance: POTASSIUM ACETATE
  35. ZINC CHLORIDE [Concomitant]
     Active Substance: ZINC CHLORIDE
  36. SYNTHROID [Concomitant]
     Active Substance: LEVOTHYROXINE SODIUM
  37. LIPITOR [Concomitant]
     Active Substance: ATORVASTATIN CALCIUM
  38. PROTONIX [Concomitant]
     Active Substance: PANTOPRAZOLE SODIUM
  39. NYSTATIN [Concomitant]
     Active Substance: NYSTATIN
  40. ZOFRAN [Concomitant]
     Active Substance: ONDANSETRON HYDROCHLORIDE
  41. PRILOSEC [Concomitant]
     Active Substance: OMEPRAZOLE MAGNESIUM
  42. ZANTAC [Concomitant]
     Active Substance: RANITIDINE HYDROCHLORIDE
  43. OMEPRAZOLE [Concomitant]
     Active Substance: OMEPRAZOLE
  44. PREVACID [Concomitant]
     Active Substance: LANSOPRAZOLE

REACTIONS (1)
  - Adenocarcinoma [Unknown]
